FAERS Safety Report 8800120 (Version 8)
Quarter: 2013Q3

REPORT INFORMATION
  Report Type: Report from Study
  Country: JP (occurrence: JP)
  Receive Date: 20120921
  Receipt Date: 20130705
  Transmission Date: 20140515
  Serious: Yes (Hospitalization)
  Sender: FDA-Public Use
  Company Number: JP-VERTEX PHARMACEUTICAL INC.-AE-2012-010567

PATIENT
  Age: 50 Year
  Sex: Female

DRUGS (26)
  1. VX-950 (TELAPREVIR) [Suspect]
     Indication: CHRONIC HEPATITIS C
     Dosage: 1500 MG, QD
     Route: 048
     Dates: start: 20120530, end: 20120707
  2. RIBAVIRIN [Suspect]
     Indication: CHRONIC HEPATITIS C
     Dosage: 400 MG, QD
     Route: 048
     Dates: start: 20120530, end: 20120612
  3. RIBAVIRIN [Suspect]
     Dosage: 200 MG, QD
     Route: 048
     Dates: start: 20120613, end: 20120707
  4. PEGINTERFERON ALFA-2B [Suspect]
     Indication: CHRONIC HEPATITIS C
     Dosage: 1.4 ?G/KG, QW
     Route: 058
     Dates: start: 20120530, end: 20120704
  5. ZYLORIC [Suspect]
     Indication: ADVERSE EVENT
     Dosage: 200 MG, QD
     Route: 048
     Dates: start: 20120602, end: 20120808
  6. PREDONINE [Suspect]
     Indication: ADVERSE EVENT
     Dosage: 20 MG, QD
     Route: 048
     Dates: start: 20120702, end: 20120703
  7. PREDONINE [Suspect]
     Dosage: 10 MG, QD
     Route: 048
     Dates: start: 20120704, end: 20120705
  8. PREDONINE [Suspect]
     Dosage: 20 MG, QD
     Route: 048
     Dates: start: 20120706, end: 20120707
  9. PREDONINE [Suspect]
     Dosage: 60 MG, QD
     Route: 048
     Dates: start: 20120708, end: 20120709
  10. PREDONINE [Suspect]
     Dosage: 50 MG, QD
     Route: 048
     Dates: start: 20120710, end: 20120719
  11. PREDONINE [Suspect]
     Dosage: 40 MG, QD
     Route: 048
     Dates: start: 20120720, end: 20120727
  12. PREDONINE [Suspect]
     Dosage: 60 MG, QD
     Route: 048
     Dates: start: 20120728, end: 20120730
  13. PREDONINE [Suspect]
     Dosage: 60 MG, QD
     Route: 048
     Dates: start: 20120803, end: 20120805
  14. PREDONINE [Suspect]
     Dosage: 50 MG, QD
     Route: 048
     Dates: start: 20120825, end: 20120827
  15. PREDONINE [Suspect]
     Dosage: 40 MG, QD
     Route: 048
     Dates: start: 20120828, end: 20120902
  16. PREDONINE [Suspect]
     Dosage: 30 MG, QD
     Route: 048
     Dates: start: 20120903
  17. PREDONINE [Suspect]
     Dosage: 60 MG, QD
     Route: 048
     Dates: start: 20120803, end: 20120805
  18. VITAMEDIN [Concomitant]
     Dosage: 1 DF, QD
     Route: 042
     Dates: start: 20120728, end: 20120803
  19. GASTER D [Concomitant]
     Dosage: 40 MG, QD
     Route: 048
     Dates: start: 20120702, end: 20120707
  20. PARIET [Concomitant]
     Dosage: 20 MG, QD
     Route: 048
     Dates: start: 20120708
  21. FOSAMAC [Concomitant]
     Dosage: 35 MG, QW
     Route: 048
     Dates: start: 20120709
  22. AZUNOL [Concomitant]
     Dosage: UNK, QS/PRN
     Route: 049
     Dates: start: 20120720, end: 20120726
  23. BICARBON [Concomitant]
     Dosage: 1500 ML, QD
     Route: 042
     Dates: start: 20120727, end: 20120802
  24. REBAMIPIDE [Concomitant]
     Dosage: UNK, QS/PRN
     Route: 049
     Dates: start: 20120729
  25. FLOMOX [Concomitant]
     Dosage: 300 MG, QD
     Route: 048
     Dates: start: 20120803, end: 20120807
  26. TRAVELMIN [Concomitant]
     Dosage: 1 ML, QD
     Route: 042
     Dates: start: 20120809, end: 20120809

REACTIONS (2)
  - Toxic epidermal necrolysis [Recovered/Resolved]
  - Rash [Recovered/Resolved]
